FAERS Safety Report 13843189 (Version 1)
Quarter: 2017Q3

REPORT INFORMATION
  Report Type: Spontaneous
  Country: US (occurrence: US)
  Receive Date: 20170808
  Receipt Date: 20170808
  Transmission Date: 20171127
  Serious: Yes (Other)
  Sender: FDA-Public Use
  Company Number: US-TEVA-777262USA

PATIENT
  Sex: Female

DRUGS (1)
  1. DESVENLAFAXINE SODIUM [Suspect]
     Active Substance: DESVENLAFAXINE
     Indication: BIPOLAR DISORDER
     Route: 065
     Dates: start: 20170323

REACTIONS (4)
  - Tremor [Unknown]
  - Product substitution issue [Unknown]
  - Suicidal ideation [Unknown]
  - Insomnia [Unknown]
